FAERS Safety Report 16032064 (Version 1)
Quarter: 2019Q1

REPORT INFORMATION
  Report Type: Spontaneous
  Country: US (occurrence: US)
  Receive Date: 20190304
  Receipt Date: 20190304
  Transmission Date: 20190418
  Serious: Yes (Other)
  Sender: FDA-Public Use
  Company Number: PHHY2019US047159

PATIENT
  Sex: Male

DRUGS (3)
  1. DOXYCYCLINE. [Suspect]
     Active Substance: DOXYCYCLINE
     Indication: SCLEROTHERAPY
     Dosage: 300 MG, UNK
     Route: 065
  2. DOXYCYCLINE. [Suspect]
     Active Substance: DOXYCYCLINE
     Indication: LYMPHANGIOMA
     Dosage: 500 MG, UNK
     Route: 065
  3. IOHEXOL [Concomitant]
     Active Substance: IOHEXOL
     Indication: SCLEROTHERAPY
     Dosage: 10 ML, UNK
     Route: 065

REACTIONS (7)
  - Chromaturia [Unknown]
  - Methaemoglobinaemia [Recovering/Resolving]
  - Anaemia [Unknown]
  - Oxygen saturation decreased [Recovering/Resolving]
  - Product use in unapproved indication [Unknown]
  - Metabolic acidosis [Unknown]
  - Product use issue [Unknown]
